FAERS Safety Report 12010602 (Version 1)
Quarter: 2016Q1

REPORT INFORMATION
  Report Type: Spontaneous
  Country: AU (occurrence: AU)
  Receive Date: 20160205
  Receipt Date: 20160205
  Transmission Date: 20160526
  Serious: Yes (Other)
  Sender: FDA-Public Use
  Company Number: AU-SUN PHARMACEUTICAL INDUSTRIES LTD-2015R1-102116

PATIENT
  Age: 78 Year
  Sex: Male

DRUGS (1)
  1. CLOZAPINE. [Suspect]
     Active Substance: CLOZAPINE
     Indication: PRODUCT USED FOR UNKNOWN INDICATION
     Dosage: 350 MG, SINGLE
     Route: 048

REACTIONS (4)
  - Stupor [Recovered/Resolved]
  - Accidental exposure to product [Unknown]
  - Delirium [Recovered/Resolved]
  - Myoclonus [Unknown]
